FAERS Safety Report 5276712-7 (Version None)
Quarter: 2007Q1

REPORT INFORMATION
  Report Type: 
  Country: None (occurrence: None)
  Receive Date: 20070321
  Receipt Date: 20070111
  Transmission Date: 20070707
  Serious: Yes (Hospitalization)
  Sender: FDA-Public Use
  Company Number: 237716K06USA

PATIENT
  Age: 53 Year
  Sex: Female
  Weight: 54.4316 kg

DRUGS (9)
  1. REBIF [Suspect]
     Indication: MULTIPLE SCLEROSIS
     Dosage: 8.8 MCG, 3 IN 1 WEEKS, SUBCUTANEOUS
     Route: 058
     Dates: start: 20061103, end: 20061101
  2. CARBATROL [Suspect]
     Dates: end: 20061101
  3. NEURONTIN [Concomitant]
  4. MEDROL PACK (METHYLPREDNISOLONE) [Concomitant]
  5. CARBATROL [Concomitant]
  6. TEGRETOL [Concomitant]
  7. THYROID TAB [Concomitant]
  8. PAXIL [Concomitant]
  9. TRAZODONE HCL [Concomitant]

REACTIONS (8)
  - HEADACHE [None]
  - HEPATITIS [None]
  - NIGHT SWEATS [None]
  - ORAL PAIN [None]
  - PHARYNGEAL OEDEMA [None]
  - PHARYNGOLARYNGEAL PAIN [None]
  - RASH [None]
  - THERAPEUTIC AGENT TOXICITY [None]
